FAERS Safety Report 6901402-1 (Version None)
Quarter: 2010Q3

REPORT INFORMATION
  Report Type: 
  Country: None (occurrence: None)
  Receive Date: 20100803
  Receipt Date: 20080129
  Transmission Date: 20110219
  Serious: No
  Sender: FDA-Public Use
  Company Number: US-PFIZER INC-2008010053

PATIENT
  Sex: Male
  Weight: 80.9 kg

DRUGS (9)
  1. LYRICA [Suspect]
     Indication: FIBROMYALGIA
     Dates: start: 20050101
  2. LYRICA [Suspect]
     Indication: SCIATICA
  3. METHADONE HCL [Concomitant]
  4. SKELAXIN [Concomitant]
  5. REQUIP [Concomitant]
  6. KLONOPIN [Concomitant]
  7. TOPAMAX [Concomitant]
  8. MIRALAX [Concomitant]
  9. ALL OTHER THERAPEUTIC PRODUCTS [Concomitant]

REACTIONS (5)
  - DRUG INEFFECTIVE FOR UNAPPROVED INDICATION [None]
  - FATIGUE [None]
  - IRRITABLE BOWEL SYNDROME [None]
  - NEUROPATHY PERIPHERAL [None]
  - PROTEIN TOTAL INCREASED [None]
